FAERS Safety Report 9466404 (Version 1)
Quarter: 2013Q3

REPORT INFORMATION
  Report Type: Spontaneous
  Country: GB (occurrence: GB)
  Receive Date: 20130820
  Receipt Date: 20130820
  Transmission Date: 20140515
  Serious: Yes (Disabling, Other)
  Sender: FDA-Public Use
  Company Number: GB-B.I. PHARMACEUTICALS,INC./RIDGEFIELD-2013-UK-01644UK

PATIENT
  Age: 90 Year
  Sex: Female

DRUGS (15)
  1. PRADAXA [Suspect]
     Dates: start: 20130718
  2. AMOXICILLIN [Concomitant]
     Dates: start: 20130502, end: 20130503
  3. ASPIRIN [Concomitant]
     Dates: start: 20130404
  4. BISOPROLOL [Concomitant]
     Dates: start: 20130404
  5. CODEINE PHOSPHATE [Concomitant]
     Dates: start: 20130715, end: 20130716
  6. CODEINE PHOSPHATE [Concomitant]
     Dates: start: 20130528, end: 20130529
  7. DIGOXIN [Concomitant]
     Dates: start: 20130404
  8. DOUBLEBASE [Concomitant]
     Dates: start: 20130404, end: 20130502
  9. FUROSEMIDE [Concomitant]
     Dates: start: 20130306
  10. MACROGOL [Concomitant]
     Dates: start: 20130308, end: 20130503
  11. MACROGOL [Concomitant]
     Dates: start: 20130715
  12. PARACETAMOL [Concomitant]
     Dates: start: 20130715, end: 20130716
  13. PARACETAMOL [Concomitant]
     Dates: start: 20130520, end: 20130521
  14. PARACETAMOL [Concomitant]
     Dates: start: 20130625, end: 20130626
  15. ZOPICLONE [Concomitant]
     Dates: start: 20130404

REACTIONS (2)
  - Nausea [Recovered/Resolved]
  - Fatigue [Recovered/Resolved]
